FAERS Safety Report 12429741 (Version 1)
Quarter: 2016Q2

REPORT INFORMATION
  Report Type: Spontaneous
  Country: CZ (occurrence: CZ)
  Receive Date: 20160602
  Receipt Date: 20160602
  Transmission Date: 20160815
  Serious: Yes (Hospitalization)
  Sender: FDA-Public Use
  Company Number: CZ-FRESENIUS KABI-FK201603214

PATIENT
  Age: 43 Year
  Sex: Female
  Weight: 111 kg

DRUGS (4)
  1. PACLITAXEL 6MG/ML CONCENTRATE FOR SOLUTION FOR INFUSION [Suspect]
     Active Substance: PACLITAXEL
     Indication: CERVIX NEOPLASM
     Route: 042
     Dates: start: 20160517, end: 20160517
  2. VALSACOR [Concomitant]
     Active Substance: VALSARTAN
  3. ALGIFEN [Concomitant]
     Indication: PAIN
  4. CLEXANE [Concomitant]
     Active Substance: ENOXAPARIN SODIUM
     Route: 058

REACTIONS (3)
  - Dyspnoea [Recovered/Resolved]
  - Hypersensitivity [Recovered/Resolved]
  - Panic reaction [Recovered/Resolved]

NARRATIVE: CASE EVENT DATE: 20160517
